FAERS Safety Report 6632682-8 (Version None)
Quarter: 2010Q1

REPORT INFORMATION
  Report Type: 
  Country: None (occurrence: None)
  Receive Date: 20100312
  Receipt Date: 20100301
  Transmission Date: 20100710
  Serious: Yes (Hospitalization)
  Sender: FDA-Public Use
  Company Number: IL-ELI_LILLY_AND_COMPANY-IL201002002948

PATIENT
  Age: 64 Year
  Sex: Female
  Weight: 130 kg

DRUGS (11)
  1. BYETTA [Suspect]
     Dosage: 5 UG, UNK
     Route: 058
     Dates: start: 20100210, end: 20100101
  2. NOVONORM [Concomitant]
     Dosage: 3 MG, UNKNOWN
     Route: 048
     Dates: start: 20091215
  3. NORMALOL [Concomitant]
     Dosage: 1 D/F, UNKNOWN
     Route: 048
     Dates: start: 20100101
  4. BEZAFIBRATE [Concomitant]
     Indication: LIPIDS DECREASED
     Dosage: 1 D/F, UNKNOWN
     Route: 048
     Dates: start: 20091215
  5. FUSID [Concomitant]
     Dosage: 1.5 D/F, 2/D
     Route: 048
     Dates: start: 20080101
  6. AMLO                               /00972402/ [Concomitant]
     Dosage: UNK, UNKNOWN
     Route: 048
     Dates: start: 20090101
  7. FAMOTIDINE [Concomitant]
     Dosage: 1 UNK, UNKNOWN
     Route: 048
     Dates: start: 20090101
  8. ASPIRIN [Concomitant]
     Dosage: UNK, UNKNOWN
     Route: 048
     Dates: start: 20060101
  9. LIPITOR [Concomitant]
     Dosage: UNK, UNKNOWN
     Route: 048
     Dates: start: 20090101
  10. LEVEMIR [Concomitant]
     Indication: DIABETES MELLITUS
     Dosage: 42 U, UNKNOWN
     Route: 058
     Dates: start: 20070101
  11. ENALAPRIL MALEATE [Concomitant]
     Dosage: 1 UNK, UNKNOWN
     Route: 048
     Dates: start: 20090101

REACTIONS (2)
  - CHROMATURIA [None]
  - GASTRITIS [None]
